FAERS Safety Report 23726465 (Version 2)
Quarter: 2024Q2

REPORT INFORMATION
  Report Type: Spontaneous
  Country: CA (occurrence: CA)
  Receive Date: 20240410
  Receipt Date: 20240420
  Transmission Date: 20240716
  Serious: Yes (Other)
  Sender: FDA-Public Use
  Company Number: None

PATIENT
  Age: 8 Decade
  Sex: Female

DRUGS (2)
  1. METHOTREXATE SODIUM [Suspect]
     Active Substance: METHOTREXATE SODIUM
     Indication: Corneal epithelial downgrowth
     Dosage: ROUTE: OTHER
  2. FLUOROURACIL [Concomitant]
     Active Substance: FLUOROURACIL
     Indication: Corneal epithelial downgrowth
     Dosage: ROUTE: OTHER

REACTIONS (1)
  - Retinal pigment epitheliopathy [Recovered/Resolved]
